FAERS Safety Report 7339364-8 (Version None)
Quarter: 2011Q1

REPORT INFORMATION
  Report Type: 
  Country: None (occurrence: None)
  Receive Date: 20110308
  Receipt Date: 20110302
  Transmission Date: 20110831
  Serious: Yes (Other)
  Sender: FDA-Public Use
  Company Number: US-PFIZER INC-US-WYE-H18525710

PATIENT
  Sex: Female
  Weight: 77.1 kg

DRUGS (6)
  1. RELISTOR [Suspect]
     Indication: CONSTIPATION
     Dosage: 0.1 MG, EVERY 2 DAYS
     Route: 030
     Dates: start: 20101101, end: 20101101
  2. OXYCONTIN [Concomitant]
  3. PHENERGAN CREAM /OLD/ [Concomitant]
     Route: 054
  4. OXYCODONE [Concomitant]
     Route: 065
  5. FIORINAL W/CODEINE [Concomitant]
     Route: 065
  6. KLONOPIN [Concomitant]
     Route: 065

REACTIONS (6)
  - INCORRECT ROUTE OF DRUG ADMINISTRATION [None]
  - DRUG DISPENSING ERROR [None]
  - ABDOMINAL DISTENSION [None]
  - GALLBLADDER DISORDER [None]
  - VOMITING [None]
  - UNEVALUABLE EVENT [None]
